FAERS Safety Report 8860303 (Version 2)
Quarter: 2012Q4

REPORT INFORMATION
  Report Type: 
  Country: US (occurrence: US)
  Receive Date: 20121025
  Receipt Date: 20121108
  Transmission Date: 20130627
  Serious: No
  Sender: FDA-Public Use
  Company Number: US-PFIZER INC-2012261865

PATIENT
  Age: 63 Year
  Sex: Female

DRUGS (2)
  1. GLUCOTROL XL [Suspect]
     Dosage: 10 mg, 2x/day
  2. LIPITOR [Suspect]
     Dosage: 10 mg, 1x/day

REACTIONS (1)
  - Malaise [Unknown]
